FAERS Safety Report 7144983-8 (Version None)
Quarter: 2010Q4

REPORT INFORMATION
  Report Type: 
  Country: None (occurrence: None)
  Receive Date: 20101208
  Receipt Date: 20101129
  Transmission Date: 20110411
  Serious: Yes (Other)
  Sender: FDA-Public Use
  Company Number: JP-BRISTOL-MYERS SQUIBB COMPANY-14963284

PATIENT
  Age: 30 Year
  Sex: Female
  Weight: 47 kg

DRUGS (2)
  1. ABILIFY [Suspect]
     Indication: SCHIZOPHRENIA
     Dosage: 19JUL06-28JAN10,1290D;29JN-06JUN10,4MG,129D;07JN10-ONG,3MG,12JN:28JN10(17D),29JAN-06JUN10 4MG 129DY
     Route: 048
     Dates: start: 20060719, end: 20100606
  2. ABILIFY [Suspect]
     Indication: SCHIZOPHRENIA
     Dosage: AT NIGHT
     Route: 048
     Dates: start: 20100607

REACTIONS (2)
  - ABORTION SPONTANEOUS [None]
  - PREGNANCY [None]
